FAERS Safety Report 13167264 (Version 1)
Quarter: 2017Q1

REPORT INFORMATION
  Report Type: Spontaneous
  Country: US (occurrence: US)
  Receive Date: 20170130
  Receipt Date: 20170130
  Transmission Date: 20170428
  Serious: No
  Sender: FDA-Public Use
  Company Number: None

PATIENT
  Age: 85 Year
  Sex: Male

DRUGS (2)
  1. CELLCEPT [Suspect]
     Active Substance: MYCOPHENOLATE MOFETIL\MYCOPHENOLATE MOFETIL HYDROCHLORIDE
     Indication: HEART TRANSPLANT
     Route: 049
     Dates: start: 20141111
  2. TACROLIMUS .5 MG ACCORD [Suspect]
     Active Substance: TACROLIMUS
     Indication: HEART TRANSPLANT
     Route: 049
     Dates: start: 20141111

REACTIONS (4)
  - Psychotic disorder [None]
  - Pneumonia [None]
  - Therapy cessation [None]
  - Urinary tract infection [None]

NARRATIVE: CASE EVENT DATE: 20170105
